FAERS Safety Report 5012231-0 (Version None)
Quarter: 2006Q2

REPORT INFORMATION
  Report Type: 
  Country: None (occurrence: None)
  Receive Date: 20060525
  Receipt Date: 20060525
  Transmission Date: 20061013
  Serious: No
  Sender: FDA-Public Use
  Company Number: None

PATIENT
  Sex: Female
  Weight: 38.1022 kg

DRUGS (2)
  1. KETEK [Suspect]
     Indication: ARTHROPOD BITE
     Dosage: 400 MG   ONCE A DAY   PO
     Route: 048
     Dates: start: 20060114, end: 20060223
  2. KETEK [Suspect]
     Indication: ILL-DEFINED DISORDER
     Dosage: 400 MG   ONCE A DAY   PO
     Route: 048
     Dates: start: 20060114, end: 20060223

REACTIONS (2)
  - ALANINE AMINOTRANSFERASE INCREASED [None]
  - ASPARTATE AMINOTRANSFERASE INCREASED [None]
